FAERS Safety Report 15153362 (Version 2)
Quarter: 2018Q3

REPORT INFORMATION
  Report Type: Spontaneous
  Country: JP (occurrence: JP)
  Receive Date: 20180717
  Receipt Date: 20180824
  Transmission Date: 20181010
  Serious: Yes (Hospitalization)
  Sender: FDA-Public Use
  Company Number: JP-EISAI MEDICAL RESEARCH-EC-2018-042694

PATIENT
  Age: 60 Year
  Sex: Female

DRUGS (2)
  1. LENVIMA [Suspect]
     Active Substance: LENVATINIB
     Indication: HEPATOCELLULAR CARCINOMA
     Route: 048
     Dates: start: 20180627, end: 20180629
  2. LENVIMA [Suspect]
     Active Substance: LENVATINIB
     Dosage: UNKNOWN
     Route: 048
     Dates: start: 2018, end: 20180810

REACTIONS (2)
  - Decreased appetite [Unknown]
  - Proteinuria [Not Recovered/Not Resolved]

NARRATIVE: CASE EVENT DATE: 20180709
